FAERS Safety Report 19777080 (Version 1)
Quarter: 2021Q3

REPORT INFORMATION
  Report Type: Spontaneous
  Country: US (occurrence: US)
  Receive Date: 20210901
  Receipt Date: 20210901
  Transmission Date: 20211014
  Serious: No
  Sender: FDA-Public Use
  Company Number: US-ASTRAZENECA-2021A704277

PATIENT
  Age: 26606 Day
  Sex: Male
  Weight: 125.2 kg

DRUGS (1)
  1. BYDUREON BCISE [Suspect]
     Active Substance: EXENATIDE
     Indication: DIABETES MELLITUS
     Route: 058
     Dates: start: 2021

REACTIONS (4)
  - Vomiting [Unknown]
  - Nausea [Unknown]
  - Abdominal pain lower [Unknown]
  - Malaise [Unknown]

NARRATIVE: CASE EVENT DATE: 20210827
